FAERS Safety Report 8094964-5 (Version None)
Quarter: 2012Q1

REPORT INFORMATION
  Report Type: 
  Country: None (occurrence: None)
  Receive Date: 20120131
  Receipt Date: 20120124
  Transmission Date: 20120608
  Serious: No
  Sender: FDA-Public Use
  Company Number: US-BAYER-2012-008706

PATIENT
  Sex: Male
  Weight: 107 kg

DRUGS (3)
  1. ZOCOR [Concomitant]
  2. IBUPROFEN [Concomitant]
  3. ALEVE (CAPLET) [Suspect]
     Indication: ANALGESIC THERAPY
     Route: 048

REACTIONS (1)
  - PAIN [None]
